FAERS Safety Report 9514749 (Version 4)
Quarter: 2013Q4

REPORT INFORMATION
  Report Type: Spontaneous
  Country: IT (occurrence: IT)
  Receive Date: 20130911
  Receipt Date: 20131107
  Transmission Date: 20140711
  Serious: Yes (Death, Hospitalization)
  Sender: FDA-Public Use
  Company Number: IT-ROCHE-1272096

PATIENT
  Age: 70 Year
  Sex: Male

DRUGS (10)
  1. MABTHERA [Suspect]
     Indication: DIFFUSE LARGE B-CELL LYMPHOMA
     Route: 042
     Dates: start: 20130621, end: 20130726
  2. MABTHERA [Suspect]
     Route: 042
     Dates: start: 20130621, end: 20130726
  3. ENDOXAN BAXTER [Suspect]
     Indication: DIFFUSE LARGE B-CELL LYMPHOMA
     Route: 042
     Dates: start: 20130614, end: 20130726
  4. VINCRISTINE [Suspect]
     Indication: DIFFUSE LARGE B-CELL LYMPHOMA
     Route: 042
     Dates: start: 20130614, end: 20130726
  5. OMEPRAZOLE [Concomitant]
     Route: 048
  6. PARACETAMOL [Concomitant]
     Route: 048
  7. TARGIN [Concomitant]
     Route: 048
     Dates: start: 20130501, end: 20130816
  8. LYRICA [Concomitant]
     Route: 048
  9. TARGET [Concomitant]
     Dosage: FORM STRENGTH: 100MG+25MG
     Route: 048
  10. LEVOFLOXACIN [Concomitant]
     Route: 042
     Dates: start: 20130812, end: 20130816

REACTIONS (2)
  - Pneumonitis [Fatal]
  - Pleural effusion [Unknown]
